FAERS Safety Report 7710168-7 (Version None)
Quarter: 2011Q3

REPORT INFORMATION
  Report Type: 
  Country: None (occurrence: None)
  Receive Date: 20110825
  Receipt Date: 20110823
  Transmission Date: 20111222
  Serious: Yes (Disabling)
  Sender: FDA-Public Use
  Company Number: DK-BAYER-201041903GPV

PATIENT
  Age: 69 Year
  Sex: Male

DRUGS (13)
  1. HALOPERIDOL [Concomitant]
  2. LACTULOSE [Concomitant]
  3. OMNISCAN [Suspect]
     Indication: NUCLEAR MAGNETIC RESONANCE IMAGING BRAIN
     Dosage: 0.5 MILLIMOLE(S)/ML
     Route: 042
     Dates: start: 20000905, end: 20000905
  4. VITAMIN TAB [Concomitant]
  5. REMERON [Concomitant]
  6. MIRTAZAPINE [Concomitant]
  7. QUININE SULFATE [Concomitant]
  8. OMNISCAN [Suspect]
     Dosage: 0.5 MILLIMOLE(S)/ML
     Route: 042
     Dates: start: 20021203, end: 20021203
  9. CHEMOTHERAPEUTICS NOS [Concomitant]
     Indication: LYMPHOMA
  10. GADOLINIUM IN UNSPECIFIED DRUG [Suspect]
     Route: 042
     Dates: start: 20010106, end: 20010106
  11. EPOETIN BETA [Concomitant]
  12. METOCLOPRAMIDE [Concomitant]
  13. NEORECORMON [Concomitant]

REACTIONS (19)
  - NEPHROGENIC SYSTEMIC FIBROSIS [None]
  - JOINT STIFFNESS [None]
  - BONE PAIN [None]
  - MUSCULAR WEAKNESS [None]
  - PAIN IN EXTREMITY [None]
  - MUSCLE FATIGUE [None]
  - WALKING DISTANCE TEST ABNORMAL [None]
  - SKIN TIGHTNESS [None]
  - MUSCULOSKELETAL STIFFNESS [None]
  - PARAESTHESIA [None]
  - FATIGUE [None]
  - ARTHRALGIA [None]
  - OEDEMA [None]
  - RESTLESS LEGS SYNDROME [None]
  - SKIN INDURATION [None]
  - GAIT DISTURBANCE [None]
  - MOBILITY DECREASED [None]
  - HYPOAESTHESIA [None]
  - MUSCULOSKELETAL PAIN [None]
